FAERS Safety Report 8769412 (Version 1)
Quarter: 2012Q4

REPORT INFORMATION
  Report Type: 
  Country: NL (occurrence: NL)
  Receive Date: 20120904
  Receipt Date: 20120904
  Transmission Date: 20130627
  Serious: Yes (Other)
  Sender: FDA-Public Use
  Company Number: NL-PFIZER INC-2012215876

PATIENT
  Age: 65 Year
  Sex: Male

DRUGS (4)
  1. ATORVASTATIN CALCIUM [Suspect]
     Indication: ANGIOPATHY
     Dosage: 40 mg, 1x/day
     Dates: start: 19980831
  2. PERSANTIN [Concomitant]
     Dosage: 200 mg, 2x/day
     Dates: start: 20040319
  3. OMEPRAZOLE [Concomitant]
     Dosage: 40 mg, 1x/day
     Dates: start: 20081208
  4. CARBASALATE CALCIUM [Concomitant]
     Dosage: 100 mg, 1x/day
     Dates: start: 19990910

REACTIONS (1)
  - Thrombocytopenia [Unknown]
